FAERS Safety Report 23461862 (Version 5)
Quarter: 2024Q2

REPORT INFORMATION
  Report Type: Spontaneous
  Country: US (occurrence: US)
  Receive Date: 20240131
  Receipt Date: 20240510
  Transmission Date: 20240716
  Serious: Yes (Other)
  Sender: FDA-Public Use
  Company Number: US-PFIZER INC-PV202400000573

PATIENT
  Age: 10 Year
  Sex: Male

DRUGS (2)
  1. GENOTROPIN [Suspect]
     Active Substance: SOMATROPIN
     Dosage: 1.1 MG, DAILY
  2. GENOTROPIN [Suspect]
     Active Substance: SOMATROPIN
     Dosage: 1.3 MG

REACTIONS (8)
  - Injury associated with device [Unknown]
  - Intentional dose omission [Unknown]
  - Drug dose omission by device [Unknown]
  - Device use issue [Unknown]
  - Device use issue [Unknown]
  - Device mechanical issue [Unknown]
  - Needle issue [Unknown]
  - Device delivery system issue [Unknown]
